FAERS Safety Report 10072669 (Version 1)
Quarter: 2014Q2

REPORT INFORMATION
  Report Type: Other
  Country: US (occurrence: US)
  Receive Date: 20140411
  Receipt Date: 20140411
  Transmission Date: 20141212
  Serious: Yes (Congenital Anomaly, Other)
  Sender: FDA-Public Use
  Company Number: US-FRI-1000066248

PATIENT
  Sex: Male

DRUGS (6)
  1. ARMOUR THYROID [Suspect]
     Route: 064
  2. PROCARDIA [Concomitant]
  3. LOVENOX [Concomitant]
  4. ASPIRIN [Concomitant]
  5. PROGESTERONE [Concomitant]
  6. CLOMID [Concomitant]

REACTIONS (3)
  - Foetal non-stress test abnormal [Recovered/Resolved]
  - Fallot^s tetralogy [Not Recovered/Not Resolved]
  - Umbilical cord thrombosis [Recovered/Resolved]
